FAERS Safety Report 12307272 (Version 1)
Quarter: 2016Q2

REPORT INFORMATION
  Report Type: Spontaneous
  Country: US (occurrence: US)
  Receive Date: 20160426
  Receipt Date: 20160426
  Transmission Date: 20160815
  Serious: No
  Sender: FDA-Public Use
  Company Number: US-ALKERMES INC.-ALK-2015-000323

PATIENT

DRUGS (13)
  1. OMEPRAZOLE. [Concomitant]
     Active Substance: OMEPRAZOLE
     Indication: ULCER
     Dosage: UNK
     Route: 048
  2. PRAZOSIN [Concomitant]
     Active Substance: PRAZOSIN
     Indication: ANXIETY
     Dosage: UNK, QD
     Route: 048
  3. GABAPENTIN. [Concomitant]
     Active Substance: GABAPENTIN
     Indication: TREMOR
     Dosage: UNK, QD
     Route: 030
  4. MIRAPEX [Concomitant]
     Active Substance: PRAMIPEXOLE DIHYDROCHLORIDE
     Indication: RESTLESS LEGS SYNDROME
     Dosage: UNK, QD
     Route: 048
  5. VITAMINS NOS [Concomitant]
     Active Substance: VITAMINS
     Indication: PRODUCT USED FOR UNKNOWN INDICATION
     Dosage: UNK
  6. CLONIDINE. [Concomitant]
     Active Substance: CLONIDINE
     Indication: NIGHT SWEATS
     Dosage: UNK, QD
     Route: 048
  7. GABAPENTIN. [Concomitant]
     Active Substance: GABAPENTIN
     Indication: SEIZURE
  8. CELEXA [Concomitant]
     Active Substance: CITALOPRAM HYDROBROMIDE
     Indication: DEPRESSION
     Dosage: UNK
     Route: 048
  9. DICLOFENAC [Concomitant]
     Active Substance: DICLOFENAC
     Indication: ARTHRITIS
     Dosage: UNK
     Route: 048
  10. GABAPENTIN. [Concomitant]
     Active Substance: GABAPENTIN
     Indication: NEURALGIA
  11. VIVITROL [Suspect]
     Active Substance: NALTREXONE
     Indication: ALCOHOLISM
     Dosage: 380 MG, QMO
     Route: 030
     Dates: start: 20150414
  12. XANAX [Concomitant]
     Active Substance: ALPRAZOLAM
     Indication: ANXIETY
     Dosage: UNK, QD
     Route: 048
  13. VISTARIL [Concomitant]
     Active Substance: HYDROXYZINE PAMOATE
     Indication: PRODUCT USED FOR UNKNOWN INDICATION
     Dosage: UNK

REACTIONS (2)
  - Toothache [Not Recovered/Not Resolved]
  - Drug dose omission [Not Recovered/Not Resolved]

NARRATIVE: CASE EVENT DATE: 2015
